FAERS Safety Report 24340895 (Version 2)
Quarter: 2025Q2

REPORT INFORMATION
  Report Type: Spontaneous
  Country: US (occurrence: US)
  Receive Date: 20240919
  Receipt Date: 20250402
  Transmission Date: 20250716
  Serious: No
  Sender: SANOFI AVENTIS
  Company Number: US-SA-2024SA268412

PATIENT
  Age: 9 Year
  Sex: Female

DRUGS (1)
  1. DUPIXENT [Suspect]
     Active Substance: DUPILUMAB
     Indication: Dermatitis atopic
     Dosage: 200 MG, QOW
     Route: 058

REACTIONS (9)
  - Pain [Unknown]
  - Upper respiratory tract infection [Unknown]
  - Pyrexia [Unknown]
  - Dermatitis atopic [Unknown]
  - Contusion [Unknown]
  - Pruritus [Unknown]
  - Skin discolouration [Unknown]
  - Rash [Unknown]
  - Inappropriate schedule of product administration [Unknown]

NARRATIVE: CASE EVENT DATE: 20250201
